FAERS Safety Report 7851194-7 (Version None)
Quarter: 2011Q4

REPORT INFORMATION
  Report Type: 
  Country: None (occurrence: None)
  Receive Date: 20111026
  Receipt Date: 20111019
  Transmission Date: 20120403
  Serious: Yes (Hospitalization)
  Sender: FDA-Public Use
  Company Number: JP-EISAI INC-E2090-01786-SPO-JP

PATIENT
  Sex: Male

DRUGS (9)
  1. MYONAL [Concomitant]
     Dates: start: 20110714
  2. CODEINE PHOSPHATE HYDRATE [Concomitant]
     Dates: start: 20110727
  3. PAXIL [Concomitant]
     Dates: start: 20110722
  4. FAMOTIDINE D [Concomitant]
     Dates: start: 20110714
  5. LORCAM [Suspect]
     Route: 048
     Dates: start: 20110722, end: 20110808
  6. REBAMIPIDE [Concomitant]
     Dates: start: 20110722
  7. PANVITAN [Concomitant]
     Dates: start: 20110727
  8. ZONISAMIDE [Suspect]
     Indication: EPILEPSY
     Dosage: 200 MG
     Route: 048
     Dates: start: 20110714, end: 20110808
  9. MOTILIUM [Concomitant]
     Dates: start: 20110727

REACTIONS (1)
  - TOXIC EPIDERMAL NECROLYSIS [None]
